FAERS Safety Report 20137095 (Version 6)
Quarter: 2023Q1

REPORT INFORMATION
  Report Type: Report from Study
  Country: NL (occurrence: NL)
  Receive Date: 20211201
  Receipt Date: 20230320
  Transmission Date: 20230417
  Serious: Yes (Life-Threatening, Hospitalization, Other)
  Sender: FDA-Public Use
  Company Number: NL-GILEAD-2021-0552876

PATIENT
  Age: 56 Year
  Sex: Male
  Weight: 80 kg

DRUGS (55)
  1. BREXUCABTAGENE AUTOLEUCEL [Suspect]
     Active Substance: BREXUCABTAGENE AUTOLEUCEL
     Indication: Mantle cell lymphoma
     Dosage: 1 DOSAGE FORM, ONCE; 68
     Route: 042
     Dates: start: 20211005, end: 20211005
  2. CYCLOPHOSPHAMIDE [Suspect]
     Active Substance: CYCLOPHOSPHAMIDE
     Indication: Bone marrow conditioning regimen
     Dosage: 1040
     Route: 042
     Dates: start: 20210930, end: 20211002
  3. FLUDARABINE [Suspect]
     Active Substance: FLUDARABINE PHOSPHATE
     Indication: Bone marrow conditioning regimen
     Dosage: 6.25
     Route: 042
     Dates: start: 20210930, end: 20211002
  4. MESNA [Suspect]
     Active Substance: MESNA
     Indication: Prophylaxis
     Dosage: 400
     Route: 042
     Dates: start: 20210930, end: 20211003
  5. FLUDEOXYGLUCOSE F-18 [Concomitant]
     Active Substance: FLUDEOXYGLUCOSE F-18
     Dosage: 1,OTHER,ONCE
     Route: 042
     Dates: start: 20210923, end: 20210923
  6. FLUDEOXYGLUCOSE F-18 [Concomitant]
     Active Substance: FLUDEOXYGLUCOSE F-18
     Dosage: 1,OTHER,ONCE
     Route: 042
     Dates: start: 20211102, end: 20211102
  7. IOBITRIDOL [Concomitant]
     Active Substance: IOBITRIDOL
     Dosage: 90,ML,ONCE
     Route: 042
     Dates: start: 20210923, end: 20210923
  8. IOBITRIDOL [Concomitant]
     Active Substance: IOBITRIDOL
     Dosage: 90,ML,ONCE
     Route: 042
     Dates: start: 20211102, end: 20211102
  9. HEPARIN [Concomitant]
     Active Substance: HEPARIN SODIUM
     Dosage: 3,ML,ONCE
     Route: 042
     Dates: start: 20210930, end: 20210930
  10. LIDOCAINE [Concomitant]
     Active Substance: LIDOCAINE
     Dosage: 200,MG,ONCE
     Route: 058
     Dates: start: 20210930, end: 20210930
  11. METOCLOPRAMIDE [Concomitant]
     Active Substance: METOCLOPRAMIDE
     Dosage: 10,MG,OTHER
     Route: 048
     Dates: start: 20210930, end: 20211018
  12. SODIUM BICARBONATE [Concomitant]
     Active Substance: SODIUM BICARBONATE
     Dosage: 1,OTHER,ONCE
     Route: 058
     Dates: start: 20210930, end: 20210930
  13. ONDANSETRON [Concomitant]
     Active Substance: ONDANSETRON
     Dosage: 8,MG,TWICE DAILY
     Route: 048
     Dates: start: 20210930, end: 20211011
  14. RASBURICASE [Concomitant]
     Active Substance: RASBURICASE
     Dosage: 3,MG,ONCE
     Route: 042
     Dates: start: 20210930, end: 20210930
  15. RASBURICASE [Concomitant]
     Active Substance: RASBURICASE
     Dosage: 3,MG,ONCE
     Route: 042
     Dates: start: 20211005, end: 20211005
  16. CLEMASTINE [Concomitant]
     Active Substance: CLEMASTINE
     Dosage: 2,MG,ONCE
     Route: 042
     Dates: start: 20211005, end: 20211005
  17. SULFAMETHOXAZOLE\TRIMETHOPRIM [Concomitant]
     Active Substance: SULFAMETHOXAZOLE\TRIMETHOPRIM
     Dosage: 480,MG,DAILY
     Route: 048
     Dates: start: 20211005, end: 20221022
  18. VALACYCLOVIR HYDROCHLORIDE [Concomitant]
     Active Substance: VALACYCLOVIR HYDROCHLORIDE
     Dosage: 500,MG,TWICE DAILY
     Route: 048
     Dates: start: 20211005, end: 20230201
  19. ACETAMINOPHEN [Concomitant]
     Active Substance: ACETAMINOPHEN
     Dosage: 1000 MG, ONCE
     Route: 048
     Dates: start: 20211005, end: 20211005
  20. ACETAMINOPHEN [Concomitant]
     Active Substance: ACETAMINOPHEN
     Dosage: 1000 MG, BID
     Route: 048
     Dates: start: 20211008, end: 20211009
  21. ACETAMINOPHEN [Concomitant]
     Active Substance: ACETAMINOPHEN
     Dosage: 500 MG
     Route: 048
     Dates: start: 20211009, end: 20211011
  22. ACETAMINOPHEN [Concomitant]
     Active Substance: ACETAMINOPHEN
     Dosage: 500 MG, QID
     Route: 048
     Dates: start: 20211012, end: 20211013
  23. ACETAMINOPHEN [Concomitant]
     Active Substance: ACETAMINOPHEN
     Dosage: 1000 MG, TID
     Route: 048
     Dates: start: 20211013, end: 20211014
  24. ACETAMINOPHEN [Concomitant]
     Active Substance: ACETAMINOPHEN
     Dosage: 1000 MG, TID
     Route: 050
     Dates: start: 20211013, end: 20211015
  25. ACETAMINOPHEN [Concomitant]
     Active Substance: ACETAMINOPHEN
     Dosage: 500 MG
     Route: 042
     Dates: start: 20211012, end: 20211013
  26. SODIUM CHLORIDE [Concomitant]
     Active Substance: SODIUM CHLORIDE
     Dosage: UNK
     Route: 042
     Dates: start: 20210930, end: 20211020
  27. SODIUM CHLORIDE [Concomitant]
     Active Substance: SODIUM CHLORIDE
     Dosage: UNK
     Route: 042
     Dates: start: 20211113, end: 20211114
  28. TOCILIZUMAB [Concomitant]
     Active Substance: TOCILIZUMAB
     Dosage: 641.6 MG, ONCE
     Route: 042
     Dates: start: 20211009, end: 20211010
  29. TOCILIZUMAB [Concomitant]
     Active Substance: TOCILIZUMAB
     Dosage: 621.6 MG, ONCE
     Route: 042
     Dates: start: 20211010, end: 20211010
  30. TOCILIZUMAB [Concomitant]
     Active Substance: TOCILIZUMAB
     Dosage: 660 MG
     Route: 042
     Dates: start: 20211011, end: 20211011
  31. TOCILIZUMAB [Concomitant]
     Active Substance: TOCILIZUMAB
     Dosage: 621.6 MG, TID
     Route: 042
     Dates: start: 20211011, end: 20211011
  32. CEFTRIAXONE [Concomitant]
     Active Substance: CEFTRIAXONE
     Dosage: 2000,MG,DAILY
     Route: 042
     Dates: start: 20211008, end: 20211012
  33. CEFTRIAXONE [Concomitant]
     Active Substance: CEFTRIAXONE
     Dosage: 2000,MG,TWICE DAILY
     Route: 042
     Dates: start: 20211013, end: 20211015
  34. GENTAMICIN [Concomitant]
     Active Substance: GENTAMICIN
     Dosage: 392,MG,ONCE
     Route: 042
     Dates: start: 20211010, end: 20211010
  35. DEXAMETHASONE [Concomitant]
     Active Substance: DEXAMETHASONE
     Dosage: 10,MG,ONCE
     Route: 042
     Dates: start: 20211010, end: 20211010
  36. DEXAMETHASONE [Concomitant]
     Active Substance: DEXAMETHASONE
     Dosage: 10,MG,THREE TIMES DAILY
     Route: 042
     Dates: start: 20211012, end: 20211012
  37. DEXAMETHASONE [Concomitant]
     Active Substance: DEXAMETHASONE
     Dosage: 10,MG,TWICE DAILY
     Route: 048
     Dates: start: 20211020, end: 20211022
  38. DEXAMETHASONE [Concomitant]
     Active Substance: DEXAMETHASONE
     Dosage: 5,MG,DAILY
     Route: 048
     Dates: start: 20211023, end: 20211024
  39. DEXAMETHASONE [Concomitant]
     Active Substance: DEXAMETHASONE
     Dosage: 2.5,MG,DAILY
     Route: 048
     Dates: start: 20211025, end: 20211027
  40. DEXAMETHASONE [Concomitant]
     Active Substance: DEXAMETHASONE
     Dosage: 10 MG, BID
     Route: 042
     Dates: start: 20211011, end: 20211011
  41. OXYGEN [Concomitant]
     Active Substance: OXYGEN
     Dosage: 1-5 L/MIN, CONTINUOUS
     Route: 045
     Dates: start: 20211011, end: 20211016
  42. NADROPARIN [Concomitant]
     Active Substance: NADROPARIN
     Dosage: 2.850,IU,DAILY
     Route: 058
     Dates: start: 20211011, end: 20211014
  43. NOREPINEPHRINE [Concomitant]
     Active Substance: NOREPINEPHRINE
     Dosage: 0.15 MG - 0.472 MG CONTINOUS
     Route: 042
     Dates: start: 20211011, end: 20211012
  44. ELECTROLYTES NOS [Concomitant]
     Active Substance: ELECTROLYTES NOS
     Dosage: 500,ML,FOUR TIMES DAILY
     Route: 042
     Dates: start: 20211011, end: 20211012
  45. FILGRASTIM [Concomitant]
     Active Substance: FILGRASTIM
     Dosage: 0.5,ML,DAILY
     Route: 058
     Dates: start: 20211103, end: 20220203
  46. ACYCLOVIR [Concomitant]
     Active Substance: ACYCLOVIR
     Dosage: 770,MG,THREE TIMES DAILY
     Route: 042
     Dates: start: 20211013, end: 20211015
  47. METHYLPREDNISOLONE [Concomitant]
     Active Substance: METHYLPREDNISOLONE
     Dosage: 1000,MG,DAILY
     Route: 042
     Dates: start: 20211013, end: 20211013
  48. METHYLPREDNISOLONE [Concomitant]
     Active Substance: METHYLPREDNISOLONE
     Dosage: 1000,MG,TWICE DAILY
     Route: 042
     Dates: start: 20211013, end: 20211015
  49. METHYLPREDNISOLONE [Concomitant]
     Active Substance: METHYLPREDNISOLONE
     Dosage: 1000,MG,DAILY
     Route: 042
     Dates: start: 20211016, end: 20211016
  50. METHYLPREDNISOLONE [Concomitant]
     Active Substance: METHYLPREDNISOLONE
     Dosage: 500,MG,DAILY
     Route: 042
     Dates: start: 20211017, end: 20211018
  51. METHYLPREDNISOLONE [Concomitant]
     Active Substance: METHYLPREDNISOLONE
     Dosage: 250,MG,DAILY
     Route: 042
     Dates: start: 20211019, end: 20211019
  52. PROPOFOL [Concomitant]
     Active Substance: PROPOFOL
     Dosage: 1.818,OTHER,CONTINUOUS
     Route: 042
     Dates: start: 20211013, end: 20211013
  53. ESOMEPRAZOLE [Concomitant]
     Active Substance: ESOMEPRAZOLE
     Dosage: 40,MG,DAILY
     Route: 048
     Dates: start: 20211014, end: 20211029
  54. LEVETIRACETAM [Concomitant]
     Active Substance: LEVETIRACETAM
     Dosage: 500,MG,TWICE DAILY
     Route: 048
     Dates: start: 20211013, end: 20211013
  55. LEVETIRACETAM [Concomitant]
     Active Substance: LEVETIRACETAM
     Dosage: 750,MG,TWICE DAILY
     Route: 048
     Dates: start: 20211013, end: 20220309

REACTIONS (6)
  - Generalised tonic-clonic seizure [Recovered/Resolved]
  - Diplopia [Recovered/Resolved]
  - Delirium [Recovered/Resolved]
  - Dysarthria [Recovered/Resolved]
  - Amnesia [Recovered/Resolved]
  - Aphasia [Recovered/Resolved]

NARRATIVE: CASE EVENT DATE: 20211013
